FAERS Safety Report 6137504-X (Version None)
Quarter: 2009Q1

REPORT INFORMATION
  Report Type: 
  Country: None (occurrence: None)
  Receive Date: 20090326
  Receipt Date: 20090318
  Transmission Date: 20090719
  Serious: Yes (Hospitalization, Disabling, Other)
  Sender: FDA-Public Use
  Company Number: 223169

PATIENT
  Sex: Male

DRUGS (9)
  1. PAMISOL 3 MG/ML (PAMIDRONIC ACID) [Suspect]
     Indication: MULTIPLE MYELOMA
     Dosage: 90 MG, MONTHLY, INTRAVENOUS
     Route: 042
     Dates: end: 20030801
  2. ZOLEDRONIC ACID [Suspect]
     Indication: MULTIPLE MYELOMA
     Dosage: 4 MG, 3-MONTHLY, INTRAVENOUS
     Route: 042
     Dates: start: 20030801, end: 20060801
  3. (THERAPEUTIC RADIOPHARMACEUTICALS) [Suspect]
     Indication: MULTIPLE MYELOMA
     Dates: start: 19990101
  4. IDARUBICIN HCL [Concomitant]
  5. DEXAMETHASONE TAB [Concomitant]
  6. INTERFERON ALFA [Concomitant]
  7. VALACYCLOVIR HCL [Concomitant]
  8. THALIDOMIDE [Concomitant]
  9. PREDNISOLONE [Concomitant]

REACTIONS (19)
  - ANKLE FRACTURE [None]
  - BLOOD TESTOSTERONE DECREASED [None]
  - BONE DENSITY INCREASED [None]
  - BONE PAIN [None]
  - ESCHERICHIA SEPSIS [None]
  - FALL [None]
  - FEMUR FRACTURE [None]
  - HERPES ZOSTER [None]
  - INJURY [None]
  - NEUROPATHY PERIPHERAL [None]
  - ORAL CAVITY FISTULA [None]
  - OSTEONECROSIS [None]
  - OSTEOSCLEROSIS [None]
  - PLATELET COUNT DECREASED [None]
  - RIB FRACTURE [None]
  - SEPTIC SHOCK [None]
  - STEM CELL TRANSPLANT [None]
  - TIBIA FRACTURE [None]
  - TOOTHACHE [None]
